FAERS Safety Report 9249336 (Version 1)
Quarter: 2013Q2

REPORT INFORMATION
  Report Type: Spontaneous
  Country: IE (occurrence: IE)
  Receive Date: 20130423
  Receipt Date: 20130423
  Transmission Date: 20140414
  Serious: Yes (Congenital Anomaly)
  Sender: FDA-Public Use
  Company Number: PHFR2011IE007559

PATIENT
  Sex: Male

DRUGS (3)
  1. CLOZARIL [Suspect]
     Indication: SCHIZOPHRENIA
     Dosage: PARENTRAL DOSE 500 MG DAILY
     Route: 064
  2. HYOSCINE [Concomitant]
     Indication: SALIVARY HYPERSECRETION
     Dosage: UNK
     Route: 064
  3. FOLIC ACID [Concomitant]
     Indication: ULTRASOUND ANTENATAL SCREEN
     Dosage: 0.4 MG, UNK
     Route: 064

REACTIONS (3)
  - Developmental hip dysplasia [Unknown]
  - Pyloric stenosis [Recovered/Resolved]
  - Foetal exposure during pregnancy [Unknown]
